FAERS Safety Report 13135049 (Version 1)
Quarter: 2017Q1

REPORT INFORMATION
  Report Type: Spontaneous
  Country: JP (occurrence: JP)
  Receive Date: 20170120
  Receipt Date: 20170120
  Transmission Date: 20170428
  Serious: Yes (Hospitalization)
  Sender: FDA-Public Use
  Company Number: JP-GILEAD-2017-0254006

PATIENT
  Age: 77 Year
  Sex: Female

DRUGS (6)
  1. URSO [Concomitant]
     Active Substance: URSODIOL
     Dosage: UNK
     Route: 048
  2. REBETOL [Concomitant]
     Active Substance: RIBAVIRIN
     Dosage: UNK
     Route: 048
     Dates: end: 20170117
  3. FERRUM                             /00023501/ [Concomitant]
     Route: 048
  4. SOVALDI [Suspect]
     Active Substance: SOFOSBUVIR
     Indication: PRODUCT USED FOR UNKNOWN INDICATION
     Dosage: UNK
     Route: 048
     Dates: start: 201612
  5. AMLODIPINE [Concomitant]
     Active Substance: AMLODIPINE BESYLATE
     Route: 048
  6. NATRIX [Concomitant]
     Active Substance: INDAPAMIDE
     Route: 048

REACTIONS (3)
  - Fracture [Unknown]
  - Road traffic accident [Unknown]
  - Haemoglobin decreased [Not Recovered/Not Resolved]

NARRATIVE: CASE EVENT DATE: 201701
